FAERS Safety Report 16278310 (Version 2)
Quarter: 2019Q3

REPORT INFORMATION
  Report Type: Spontaneous
  Country: GB (occurrence: GB)
  Receive Date: 20190506
  Receipt Date: 20190719
  Transmission Date: 20191004
  Serious: Yes (Other)
  Sender: FDA-Public Use
  Company Number: GB-MYLANLABS-2019M1042936

PATIENT
  Age: 91 Year
  Sex: Female

DRUGS (3)
  1. LINEZOLID. [Suspect]
     Active Substance: LINEZOLID
     Indication: URINARY TRACT INFECTION
     Dosage: UNK
     Route: 065
     Dates: start: 20180508
  2. SERTRALINE [Suspect]
     Active Substance: SERTRALINE HYDROCHLORIDE
     Dosage: 25 MILLIGRAM, QD
     Route: 048
     Dates: start: 20170501
  3. SERTRALINE [Suspect]
     Active Substance: SERTRALINE HYDROCHLORIDE
     Indication: DEPRESSION
     Dosage: UNK

REACTIONS (7)
  - Heart rate increased [Recovered/Resolved]
  - Diarrhoea [Recovered/Resolved]
  - Serotonin syndrome [Recovered/Resolved]
  - Confusional state [Recovered/Resolved]
  - Visual impairment [Recovered/Resolved]
  - Contraindicated product administered [Unknown]
  - Hallucination [Recovered/Resolved]

NARRATIVE: CASE EVENT DATE: 20180508
